FAERS Safety Report 23673407 (Version 2)
Quarter: 2024Q2

REPORT INFORMATION
  Report Type: Spontaneous
  Country: SE (occurrence: SE)
  Receive Date: 20240326
  Receipt Date: 20240625
  Transmission Date: 20240716
  Serious: Yes (Disabling)
  Sender: FDA-Public Use
  Company Number: SE-BRISTOL-MYERS SQUIBB COMPANY-2024-047295

PATIENT
  Age: 73 Year
  Sex: Male

DRUGS (1)
  1. OPDIVO [Suspect]
     Active Substance: NIVOLUMAB
     Indication: Malignant melanoma
     Dosage: FREQ : ^ONCE A MONTH^
     Route: 042
     Dates: start: 2023, end: 2023

REACTIONS (6)
  - Muscular weakness [Not Recovered/Not Resolved]
  - Incontinence [Not Recovered/Not Resolved]
  - Dysphonia [Not Recovered/Not Resolved]
  - Gait disturbance [Not Recovered/Not Resolved]
  - Weight decreased [Not Recovered/Not Resolved]
  - Reflexes abnormal [Not Recovered/Not Resolved]

NARRATIVE: CASE EVENT DATE: 20230101
